FAERS Safety Report 19165759 (Version 2)
Quarter: 2021Q2

REPORT INFORMATION
  Report Type: Spontaneous
  Country: US (occurrence: US)
  Receive Date: 20210422
  Receipt Date: 20210503
  Transmission Date: 20210717
  Serious: No
  Sender: FDA-Public Use
  Company Number: US-ASTRAZENECA-2021A327067

PATIENT
  Sex: Female
  Weight: 78.5 kg

DRUGS (2)
  1. BYDUREON BCISE [Suspect]
     Active Substance: EXENATIDE
     Indication: DIABETES MELLITUS
     Route: 058
     Dates: start: 2020
  2. BYDUREON [Suspect]
     Active Substance: EXENATIDE
     Indication: DIABETES MELLITUS
     Route: 058
     Dates: start: 2018, end: 2020

REACTIONS (5)
  - Device malfunction [Unknown]
  - Device leakage [Unknown]
  - Device use issue [Unknown]
  - Incorrect dose administered by device [Unknown]
  - Injection site mass [Unknown]
